FAERS Safety Report 13669289 (Version 2)
Quarter: 2017Q3

REPORT INFORMATION
  Report Type: Spontaneous
  Country: US (occurrence: US)
  Receive Date: 20170620
  Receipt Date: 20170725
  Transmission Date: 20171127
  Serious: Yes (Hospitalization)
  Sender: FDA-Public Use
  Company Number: US-US WORLDMEDS, LLC-USW201706-000838

PATIENT
  Sex: Female

DRUGS (1)
  1. MYOBLOC [Suspect]
     Active Substance: RIMABOTULINUMTOXINB
     Indication: TORTICOLLIS
     Route: 030
     Dates: start: 20160512, end: 20160512

REACTIONS (12)
  - Asthenia [Not Recovered/Not Resolved]
  - Complication associated with device [Unknown]
  - Gait inability [Recovered/Resolved]
  - Muscle spasms [Unknown]
  - Hypokinesia [Recovered/Resolved]
  - Pain [Not Recovered/Not Resolved]
  - Swelling [Not Recovered/Not Resolved]
  - Neuropathy peripheral [Not Recovered/Not Resolved]
  - Crepitations [Unknown]
  - Wrong drug administered [Unknown]
  - Hypoaesthesia [Not Recovered/Not Resolved]
  - Back pain [Not Recovered/Not Resolved]

NARRATIVE: CASE EVENT DATE: 20160512
